FAERS Safety Report 8168721-5 (Version None)
Quarter: 2012Q1

REPORT INFORMATION
  Report Type: 
  Country: None (occurrence: None)
  Receive Date: 20120227
  Receipt Date: 20120223
  Transmission Date: 20120608
  Serious: Yes (Hospitalization, Other)
  Sender: FDA-Public Use
  Company Number: PHHO2012BR003309

PATIENT
  Sex: Male
  Weight: 90 kg

DRUGS (1)
  1. FTY [Suspect]
     Indication: MULTIPLE SCLEROSIS
     Dosage: 0.5 MG, BID
     Dates: start: 20110509, end: 20120217

REACTIONS (4)
  - TACHYCARDIA [None]
  - ATRIAL FIBRILLATION [None]
  - PSYCHOMOTOR HYPERACTIVITY [None]
  - ALCOHOL USE [None]
